FAERS Safety Report 25222202 (Version 1)
Quarter: 2025Q2

REPORT INFORMATION
  Report Type: Spontaneous
  Country: HR (occurrence: HR)
  Receive Date: 20250421
  Receipt Date: 20250421
  Transmission Date: 20250717
  Serious: Yes (Other)
  Sender: ELI LILLY AND COMPANY
  Company Number: HR-Merck Healthcare KGaA-2025018147

PATIENT
  Sex: Male

DRUGS (4)
  1. ERBITUX [Suspect]
     Active Substance: CETUXIMAB
     Indication: Colorectal cancer metastatic
     Route: 065
     Dates: start: 202211, end: 202307
  2. LEUCOVORIN [Suspect]
     Active Substance: LEUCOVORIN\LEUCOVORIN CALCIUM
     Indication: Colorectal cancer metastatic
     Route: 065
     Dates: start: 202211, end: 202307
  3. FLUOROURACIL [Suspect]
     Active Substance: FLUOROURACIL
     Indication: Colorectal cancer metastatic
     Route: 065
     Dates: start: 202211, end: 202307
  4. IRINOTECAN [Suspect]
     Active Substance: IRINOTECAN
     Indication: Colorectal cancer metastatic
     Route: 065
     Dates: start: 202211, end: 202307

REACTIONS (2)
  - Haematotoxicity [Unknown]
  - Deep vein thrombosis [Unknown]
